FAERS Safety Report 17131935 (Version 3)
Quarter: 2020Q4

REPORT INFORMATION
  Report Type: Spontaneous
  Country: US (occurrence: US)
  Receive Date: 20191209
  Receipt Date: 20201118
  Transmission Date: 20210113
  Serious: No
  Sender: FDA-Public Use
  Company Number: US-UCBSA-2016043811

PATIENT
  Age: 53 Year
  Sex: Female

DRUGS (2)
  1. KEPPRA XR [Suspect]
     Active Substance: LEVETIRACETAM
     Indication: EPILEPSY
     Dosage: UNK
     Route: 048
     Dates: start: 2011
  2. VIMPAT [Suspect]
     Active Substance: LACOSAMIDE
     Indication: EPILEPSY
     Dosage: UNK
     Route: 048
     Dates: start: 2011

REACTIONS (5)
  - Dizziness [Unknown]
  - Seizure [Unknown]
  - Hypoaesthesia oral [Recovered/Resolved]
  - Speech disorder [Unknown]
  - Fatigue [Unknown]

NARRATIVE: CASE EVENT DATE: 20161109
